FAERS Safety Report 25890835 (Version 1)
Quarter: 2025Q4

REPORT INFORMATION
  Report Type: Spontaneous
  Country: US (occurrence: US)
  Receive Date: 20251007
  Receipt Date: 20251007
  Transmission Date: 20260117
  Serious: No
  Sender: FERRING
  Company Number: US-FERRINGPH-2025FE05253

PATIENT
  Sex: Male

DRUGS (2)
  1. ADSTILADRIN [Suspect]
     Active Substance: NADOFARAGENE FIRADENOVEC-VNCG
     Indication: Product used for unknown indication
     Dosage: UNK, ONCE/SINGLE
     Route: 065
     Dates: start: 20250828, end: 20250828
  2. OXYBUTYNIN [Concomitant]
     Active Substance: OXYBUTYNIN
     Dosage: UNK, ONCE/SINGLE
     Dates: start: 20250828, end: 20250828

REACTIONS (1)
  - Expulsion of medication [Unknown]

NARRATIVE: CASE EVENT DATE: 20250828
